FAERS Safety Report 10400721 (Version 3)
Quarter: 2014Q3

REPORT INFORMATION
  Report Type: Report from Study
  Country: FR (occurrence: FR)
  Receive Date: 20140821
  Receipt Date: 20140829
  Transmission Date: 20150326
  Serious: Yes (Death)
  Sender: FDA-Public Use
  Company Number: FR-JNJFOC-20140515858

PATIENT
  Age: 64 Year
  Sex: Male
  Weight: 62 kg

DRUGS (5)
  1. IBRUTINIB [Suspect]
     Active Substance: IBRUTINIB
     Indication: LYMPHOCYTIC LYMPHOMA
     Route: 048
     Dates: start: 20140422
  2. EPOETIN ZETA [Concomitant]
     Active Substance: ERYTHROPOIETIN
     Indication: ANAEMIA
     Dates: start: 20140523
  3. IBRUTINIB [Suspect]
     Active Substance: IBRUTINIB
     Indication: LYMPHOCYTIC LYMPHOMA
     Route: 048
     Dates: start: 20140528, end: 20140808
  4. IBRUTINIB [Suspect]
     Active Substance: IBRUTINIB
     Indication: CHRONIC LYMPHOCYTIC LEUKAEMIA
     Route: 048
     Dates: start: 20140422
  5. IBRUTINIB [Suspect]
     Active Substance: IBRUTINIB
     Indication: CHRONIC LYMPHOCYTIC LEUKAEMIA
     Route: 048
     Dates: start: 20140528, end: 20140808

REACTIONS (10)
  - Creatinine renal clearance increased [Unknown]
  - Diarrhoea [Unknown]
  - Blood lactate dehydrogenase increased [Unknown]
  - Lactic acidosis [Unknown]
  - Platelet count decreased [Unknown]
  - Aspartate aminotransferase increased [Recovering/Resolving]
  - Disease progression [Fatal]
  - White blood cell count increased [Unknown]
  - Lymphocyte count increased [Unknown]
  - Renal failure [Unknown]

NARRATIVE: CASE EVENT DATE: 20140502
